FAERS Safety Report 4313655-7 (Version None)
Quarter: 2004Q1

REPORT INFORMATION
  Report Type: 
  Country: None (occurrence: None)
  Receive Date: 20040305
  Receipt Date: 20040223
  Transmission Date: 20041129
  Serious: Yes (Death)
  Sender: FDA-Public Use
  Company Number: USA-2004-0013317

PATIENT
  Age: 42 Year
  Sex: Female
  Weight: 136.1 kg

DRUGS (5)
  1. OXYCODONE HCL [Suspect]
  2. MEPROBAMATE [Suspect]
  3. CARISOPRODOL [Suspect]
  4. DIPHENHYDRAMINE HCL [Suspect]
  5. ACETAMINOPHEN [Suspect]

REACTIONS (6)
  - ARRHYTHMIA [None]
  - COMA [None]
  - COUGH [None]
  - HYPERTENSIVE CARDIOMYOPATHY [None]
  - MYOCARDIAL FIBROSIS [None]
  - OBESITY [None]
